FAERS Safety Report 6689679-1 (Version None)
Quarter: 2010Q2

REPORT INFORMATION
  Report Type: 
  Country: None (occurrence: None)
  Receive Date: 20100421
  Receipt Date: 20100412
  Transmission Date: 20101027
  Serious: Yes (Hospitalization, Other)
  Sender: FDA-Public Use
  Company Number: US-RB-007399-10

PATIENT
  Sex: Male

DRUGS (1)
  1. MUCINEX DM [Suspect]
     Dosage: TOOK 3 TABLETS AT ONCE
     Route: 048

REACTIONS (2)
  - ACCIDENTAL OVERDOSE [None]
  - HALLUCINATION, VISUAL [None]
